FAERS Safety Report 7235340-4 (Version None)
Quarter: 2011Q1

REPORT INFORMATION
  Report Type: 
  Country: None (occurrence: None)
  Receive Date: 20110120
  Receipt Date: 20110113
  Transmission Date: 20110831
  Serious: Yes (Hospitalization, Other)
  Sender: FDA-Public Use
  Company Number: US-JNJFOC-20100704174

PATIENT
  Sex: Male

DRUGS (2)
  1. LEVAQUIN [Suspect]
     Indication: NEPHROLITHIASIS
     Route: 048
  2. LEVAQUIN [Suspect]
     Indication: URETHRAL OBSTRUCTION
     Route: 048

REACTIONS (6)
  - ARTHRITIS [None]
  - MONONEUROPATHY [None]
  - TENDONITIS [None]
  - GASTROINTESTINAL DISORDER [None]
  - NEUROPATHY PERIPHERAL [None]
  - TENDON RUPTURE [None]
